FAERS Safety Report 25265110 (Version 2)
Quarter: 2025Q2

REPORT INFORMATION
  Report Type: Spontaneous
  Country: FR (occurrence: FR)
  Receive Date: 20250502
  Receipt Date: 20250513
  Transmission Date: 20250716
  Serious: Yes (Death, Hospitalization, Other)
  Sender: MYLAN
  Company Number: FR-SANDOZ-SDZ2025FR024183

PATIENT
  Age: 82 Year
  Sex: Male

DRUGS (4)
  1. AMIODARONE [Suspect]
     Active Substance: AMIODARONE
     Indication: Product used for unknown indication
     Dosage: 200 MILLIGRAM, QD, (1 TABLET (200 MG)/DAY 6 DAYS OUT OF 7)
  2. AMIODARONE [Suspect]
     Active Substance: AMIODARONE
     Dosage: 200 MILLIGRAM, QD, 1 TABLET (200 MG)/DAY THEN 2 A DAY FOR 8 DAYS ON THEN 1/DAY EXCEPT SUNDAY
     Dates: start: 20170421
  3. AMIODARONE [Suspect]
     Active Substance: AMIODARONE
  4. CORDARONE [Suspect]
     Active Substance: AMIODARONE HYDROCHLORIDE
     Indication: Product used for unknown indication

REACTIONS (27)
  - Death [Fatal]
  - Atrial fibrillation [Unknown]
  - Acute respiratory failure [Unknown]
  - Dependence on oxygen therapy [Unknown]
  - Condition aggravated [Unknown]
  - Serotonin syndrome [Unknown]
  - Pyrexia [Unknown]
  - Chronic respiratory failure [Unknown]
  - Cardiac failure [Unknown]
  - Respiratory failure [Unknown]
  - Pulmonary toxicity [Unknown]
  - Pulmonary arterial hypertension [Unknown]
  - Pulmonary fibrosis [Unknown]
  - Hypoxia [Unknown]
  - Hospitalisation [Unknown]
  - Drug dependence [Unknown]
  - Drug abuse [Unknown]
  - Dyspnoea exertional [Unknown]
  - Anxiety disorder [Unknown]
  - Hyperglycaemia [Unknown]
  - Vertigo positional [Unknown]
  - Lung disorder [Unknown]
  - Purpura [Unknown]
  - Respiratory disorder [Unknown]
  - Insomnia [Unknown]
  - Sleep apnoea syndrome [Unknown]
  - Dyspnoea [Unknown]

NARRATIVE: CASE EVENT DATE: 20170101
